FAERS Safety Report 5307492-4 (Version None)
Quarter: 2007Q2

REPORT INFORMATION
  Report Type: 
  Country: None (occurrence: None)
  Receive Date: 20070425
  Receipt Date: 20070416
  Transmission Date: 20071010
  Serious: Yes (Death, Other)
  Sender: FDA-Public Use
  Company Number: A0561491A

PATIENT
  Age: 62 Year
  Sex: Male

DRUGS (4)
  1. TOSITUMOMAB [Suspect]
     Indication: NON-HODGKIN'S LYMPHOMA
     Dosage: 450MG SINGLE DOSE
     Dates: start: 19970910, end: 19970910
  2. IODINE I 131 TOSITUMOMAB [Suspect]
     Indication: NON-HODGKIN'S LYMPHOMA
     Dosage: 5MCI SINGLE DOSE
     Route: 042
     Dates: start: 19970910, end: 19970910
  3. TOSITUMOMAB [Suspect]
     Dosage: 450MG SINGLE DOSE
     Route: 042
     Dates: start: 19970917, end: 19970917
  4. IODINE I 131 TOSITUMOMAB [Suspect]
     Dosage: 107.29MCI SINGLE DOSE
     Route: 042
     Dates: start: 19970917, end: 19970917

REACTIONS (2)
  - DISEASE PROGRESSION [None]
  - LUNG ADENOCARCINOMA [None]
